FAERS Safety Report 13351338 (Version 1)
Quarter: 2017Q1

REPORT INFORMATION
  Report Type: Spontaneous
  Country: DE (occurrence: DE)
  Receive Date: 20170320
  Receipt Date: 20170320
  Transmission Date: 20170429
  Serious: Yes (Death, Hospitalization, Other)
  Sender: FDA-Public Use
  Company Number: PHHY2017DE026993

PATIENT
  Age: 31 Year
  Sex: Female

DRUGS (1)
  1. DICLOFENAC SODIUM. [Suspect]
     Active Substance: DICLOFENAC SODIUM
     Indication: PRODUCT USED FOR UNKNOWN INDICATION
     Dosage: UNK
     Route: 030

REACTIONS (44)
  - Hypoglycaemia [Fatal]
  - Cellulitis [Fatal]
  - Blood creatine phosphokinase increased [Fatal]
  - Corneal infection [Fatal]
  - Ulcerative keratitis [Fatal]
  - Bone marrow tumour cell infiltration [Fatal]
  - Apnoea [Unknown]
  - Peritonitis [Unknown]
  - Respiratory disorder [Unknown]
  - Chills [Fatal]
  - General physical health deterioration [Fatal]
  - C-reactive protein increased [Fatal]
  - Injection site swelling [Fatal]
  - Septic shock [Fatal]
  - Pain in extremity [Fatal]
  - Anuria [Fatal]
  - Ascites [Fatal]
  - Brain oedema [Unknown]
  - Malaise [Unknown]
  - Myopathy [Unknown]
  - Injection site pain [Fatal]
  - Pyrexia [Fatal]
  - Shock symptom [Fatal]
  - Rhabdomyolysis [Fatal]
  - Brain stem syndrome [Fatal]
  - Neuropathy peripheral [Unknown]
  - Inflammation [Fatal]
  - Hepatic failure [Fatal]
  - Beta haemolytic streptococcal infection [Fatal]
  - Somnolence [Fatal]
  - Intracranial mass [Fatal]
  - Injection site oedema [Unknown]
  - Necrotising soft tissue infection [Fatal]
  - Sepsis [Fatal]
  - Muscle atrophy [Fatal]
  - Leukopenia [Fatal]
  - Coagulation test abnormal [Fatal]
  - Haemorrhage intracranial [Fatal]
  - Multiple organ dysfunction syndrome [Fatal]
  - Thrombocytopenia [Fatal]
  - Toxic shock syndrome streptococcal [Fatal]
  - Brain abscess [Fatal]
  - Circulatory collapse [Fatal]
  - Nervous system disorder [Fatal]
